FAERS Safety Report 12694892 (Version 1)
Quarter: 2016Q3

REPORT INFORMATION
  Report Type: Spontaneous
  Country: US (occurrence: US)
  Receive Date: 20160829
  Receipt Date: 20160829
  Transmission Date: 20161109
  Serious: Yes (Death, Hospitalization, Other)
  Sender: FDA-Public Use
  Company Number: US-MYLANLABS-2016M1034694

PATIENT

DRUGS (3)
  1. DIGOXIN. [Suspect]
     Active Substance: DIGOXIN
  2. DIGOXIN. [Suspect]
     Active Substance: DIGOXIN
     Dosage: UNK
  3. DIGOXIN. [Suspect]
     Active Substance: DIGOXIN
     Indication: CARDIAC FAILURE
     Dosage: 0.125 MG, BID
     Route: 048

REACTIONS (6)
  - Bradycardia [Unknown]
  - Blood pressure decreased [Unknown]
  - Cardiac arrest [Fatal]
  - Dizziness [Unknown]
  - Hypotension [Unknown]
  - Vomiting [Unknown]

NARRATIVE: CASE EVENT DATE: 20140607
